FAERS Safety Report 4460500-5 (Version None)
Quarter: 2004Q3

REPORT INFORMATION
  Report Type: 
  Country: None (occurrence: None)
  Receive Date: 20040923
  Receipt Date: 20040913
  Transmission Date: 20050211
  Serious: Yes (Death, Hospitalization, Other)
  Sender: FDA-Public Use
  Company Number: US-JNJFOC-20040903505

PATIENT
  Age: 21 Year
  Sex: Female

DRUGS (6)
  1. CYCLOBENZAPRINE HYDROCHLORIDE [Suspect]
     Indication: SUICIDE ATTEMPT
     Dosage: 300 MG, 1 IN 1 DAY, ORAL
     Route: 048
  2. ACETAMINOPHEN/TRAMADOL (TRAMADOL/APAP) [Suspect]
     Indication: SUICIDE ATTEMPT
     Dosage: 30 G/3 G
  3. AMITRIPTYLINE (AMITRIPTYLINE) [Suspect]
     Indication: SUICIDE ATTEMPT
     Dosage: 700 MG, 1 IN 1 DAY, ORAL
     Route: 048
  4. TIZANIDINE (TIZANIDINE) [Suspect]
     Indication: SUICIDE ATTEMPT
     Dosage: 120 MG, 1 IN 1 DAY, ORAL
     Route: 048
  5. ROFECOXIB [Suspect]
     Indication: SUICIDE ATTEMPT
     Dosage: 750 MG, 1 IN 1 DAY, ORAL
     Route: 048
  6. OMEPRAZOLE [Suspect]
     Indication: SUICIDE ATTEMPT
     Dosage: 300 MG, 1 IN 1 DAY, ORAL
     Route: 048

REACTIONS (11)
  - AGGRESSION [None]
  - ASPIRATION [None]
  - DRUG INTERACTION POTENTIATION [None]
  - DRUG SCREEN POSITIVE [None]
  - DRUG TOXICITY [None]
  - LUNG DISORDER [None]
  - MULTIPLE DRUG OVERDOSE [None]
  - SEDATION [None]
  - SELF-MEDICATION [None]
  - SUICIDE ATTEMPT [None]
  - VOMITING [None]
